FAERS Safety Report 16566624 (Version 1)
Quarter: 2019Q3

REPORT INFORMATION
  Report Type: Spontaneous
  Country: US (occurrence: US)
  Receive Date: 20190712
  Receipt Date: 20190712
  Transmission Date: 20191004
  Serious: No
  Sender: FDA-Public Use
  Company Number: US-HORIZON-DUE-0408-2019

PATIENT
  Age: 32 Year
  Sex: Female

DRUGS (1)
  1. DUEXIS [Suspect]
     Active Substance: FAMOTIDINE\IBUPROFEN
     Indication: PAIN
     Dosage: 1 TAB TID AS NEEDED
     Route: 048
     Dates: start: 20190702, end: 20190703

REACTIONS (4)
  - Off label use [Recovered/Resolved]
  - Dysuria [Recovered/Resolved]
  - Cystitis noninfective [Recovered/Resolved]
  - Condition aggravated [Recovered/Resolved]

NARRATIVE: CASE EVENT DATE: 20190702
